FAERS Safety Report 5286129-7 (Version None)
Quarter: 2007Q2

REPORT INFORMATION
  Report Type: 
  Country: None (occurrence: None)
  Receive Date: 20070404
  Receipt Date: 20070326
  Transmission Date: 20071010
  Serious: Yes (Disabling)
  Sender: FDA-Public Use
  Company Number: FR-AVENTIS-200711087FR

PATIENT
  Age: 55 Year
  Sex: Female

DRUGS (2)
  1. TAXOTERE [Suspect]
     Indication: BREAST CANCER
     Route: 042
     Dates: start: 20050215, end: 20050814
  2. ZOMETA [Suspect]
     Indication: BREAST CANCER
     Route: 042
     Dates: start: 20050215, end: 20060415

REACTIONS (2)
  - OSTEONECROSIS [None]
  - STOMATITIS NECROTISING [None]
